FAERS Safety Report 18445730 (Version 1)
Quarter: 2020Q4

REPORT INFORMATION
  Report Type: Spontaneous
  Country: US (occurrence: US)
  Receive Date: 20201029
  Receipt Date: 20201029
  Transmission Date: 20210114
  Serious: Yes (Hospitalization)
  Sender: FDA-Public Use
  Company Number: None

PATIENT
  Age: 53 Year
  Sex: Female
  Weight: 70.9 kg

DRUGS (2)
  1. VIVELLE-DOT [Concomitant]
     Active Substance: ESTRADIOL
  2. OCTAGAM IMMUNE GLOBULIN (HUMAN) [Suspect]
     Active Substance: HUMAN IMMUNOGLOBULIN G
     Indication: CHRONIC INFLAMMATORY DEMYELINATING POLYRADICULONEUROPATHY
     Dosage: OTHER FREQUENCY:EVERY 28 DAYS;?
     Route: 041
     Dates: start: 20191119

REACTIONS (4)
  - Chest injury [None]
  - Back injury [None]
  - Pulmonary embolism [None]
  - Rotator cuff syndrome [None]

NARRATIVE: CASE EVENT DATE: 20201027
